FAERS Safety Report 8121048-X (Version None)
Quarter: 2012Q1

REPORT INFORMATION
  Report Type: 
  Country: None (occurrence: None)
  Receive Date: 20120208
  Receipt Date: 20120127
  Transmission Date: 20120608
  Serious: Yes (Hospitalization)
  Sender: FDA-Public Use
  Company Number: CA-JNJFOC-20120201678

PATIENT
  Sex: Female

DRUGS (1)
  1. REMICADE [Suspect]
     Indication: CROHN'S DISEASE
     Dosage: 6 VIALS
     Route: 042
     Dates: start: 20070101, end: 20100101

REACTIONS (3)
  - SURGERY [None]
  - ABSCESS [None]
  - HERNIA REPAIR [None]
